FAERS Safety Report 21831937 (Version 2)
Quarter: 2023Q1

REPORT INFORMATION
  Report Type: Report from Study
  Country: US (occurrence: US)
  Receive Date: 20230106
  Receipt Date: 20230113
  Transmission Date: 20230418
  Serious: Yes (Hospitalization, Other)
  Sender: FDA-Public Use
  Company Number: US-BRISTOL-MYERS SQUIBB COMPANY-2023-001180

PATIENT
  Age: 66 Year
  Sex: Male

DRUGS (2)
  1. CAMZYOS [Suspect]
     Active Substance: MAVACAMTEN
     Indication: Hypertrophic cardiomyopathy
     Dosage: DOSE : 2.5 MG;     FREQ : 2.5 MG DAILY
     Route: 048
     Dates: start: 20221109
  2. CAMZYOS [Suspect]
     Active Substance: MAVACAMTEN
     Dosage: DOSE : 2.5 MG;     FREQ : 2.5 MG DAILY
     Route: 048
     Dates: start: 20221205, end: 20221213

REACTIONS (1)
  - Cerebrovascular accident [Unknown]

NARRATIVE: CASE EVENT DATE: 20221215
